FAERS Safety Report 22285691 (Version 3)
Quarter: 2023Q2

REPORT INFORMATION
  Report Type: Report from Study
  Country: ES (occurrence: ES)
  Receive Date: 20230504
  Receipt Date: 20230606
  Transmission Date: 20230722
  Serious: Yes (Hospitalization)
  Sender: FDA-Public Use
  Company Number: ES-CELLTRION INC.-2023ES009310

PATIENT

DRUGS (16)
  1. BEVACIZUMAB [Suspect]
     Active Substance: BEVACIZUMAB
     Indication: Hepatocellular carcinoma
     Dosage: 906 MG
     Route: 065
     Dates: start: 20230315
  2. ATEZOLIZUMAB [Suspect]
     Active Substance: ATEZOLIZUMAB
     Indication: Hepatocellular carcinoma
     Dosage: 1200 MG PER 3 WEEK (ON 15/MAR/2023, RECEIVED MOST RECENT DOSE 1200 MG OF ATEZOLIZUMAB PRIOR TO ADVER
     Route: 042
     Dates: start: 20230315
  3. LOPERAMIDE [Concomitant]
     Active Substance: LOPERAMIDE
     Dosage: EVERY 1 DAY
  4. OMEPRAZOLE [Concomitant]
     Active Substance: OMEPRAZOLE
     Dosage: EVERY 1 DAY
  5. METFORMIN HYDROCHLORIDE [Concomitant]
     Active Substance: METFORMIN HYDROCHLORIDE
     Dosage: EVERY 1 DAY
  6. GABAPENTIN [Concomitant]
     Active Substance: GABAPENTIN
     Dosage: EVERY 1 DAY
     Dates: start: 20230309
  7. ACETAMINOPHEN [Concomitant]
     Active Substance: ACETAMINOPHEN
     Dosage: UNK
     Dates: start: 20230321, end: 20230327
  8. AMLODIPINE [Concomitant]
     Active Substance: AMLODIPINE BESYLATE
     Dosage: EVERY 1 DAY
  9. CAPTOR [Concomitant]
     Dosage: EVERY 1 DAY
  10. RASAGILINE [Concomitant]
     Active Substance: RASAGILINE
     Dosage: EVERY 1 DAY
     Dates: start: 20230309
  11. METHIMAZOLE [Concomitant]
     Active Substance: METHIMAZOLE
     Dosage: EVERY 1 DAY
  12. LISINOPRIL [Concomitant]
     Active Substance: LISINOPRIL
     Dosage: EVERY 1 DAY
  13. FUROSEMIDE [Concomitant]
     Active Substance: FUROSEMIDE
     Dosage: EVERY 1 DAY
  14. ASPIRIN [Concomitant]
     Active Substance: ASPIRIN
     Dosage: EVERY 1 DAY
  15. BENSERAZIDE\LEVODOPA [Concomitant]
     Active Substance: BENSERAZIDE\LEVODOPA
     Dosage: EVERY 1 DAY
     Dates: start: 20230309
  16. TRAZODONE [Concomitant]
     Active Substance: TRAZODONE HYDROCHLORIDE
     Dosage: EVERY 1 DAY
     Dates: start: 20230309

REACTIONS (2)
  - Pyrexia [Recovered/Resolved]
  - Intentional product use issue [Unknown]

NARRATIVE: CASE EVENT DATE: 20230321
